FAERS Safety Report 8563908-1 (Version None)
Quarter: 2012Q3

REPORT INFORMATION
  Report Type: 
  Country: None (occurrence: None)
  Receive Date: 20120727
  Receipt Date: 20120727
  Transmission Date: 20120928
  Serious: Yes (Disabling)
  Sender: FDA-Public Use
  Company Number: None

PATIENT
  Age: 44 Year
  Sex: Female
  Weight: 79.3795 kg

DRUGS (1)
  1. FINGOLIMOD 0.5MG NOVARTIS [Suspect]
     Indication: MULTIPLE SCLEROSIS
     Dosage: 0.5MG DAILY, PO
     Route: 048
     Dates: start: 20120419, end: 20120706

REACTIONS (2)
  - CHORIORETINAL DISORDER [None]
  - GRANULOMA [None]
